FAERS Safety Report 9788468 (Version 2)
Quarter: 2014Q1

REPORT INFORMATION
  Report Type: Spontaneous
  Country: US (occurrence: US)
  Receive Date: 20131230
  Receipt Date: 20140213
  Transmission Date: 20141002
  Serious: Yes (Other)
  Sender: FDA-Public Use
  Company Number: US-PFIZER INC-2013371251

PATIENT
  Age: 53 Year
  Sex: Female
  Weight: 77.1 kg

DRUGS (3)
  1. PRISTIQ [Suspect]
     Indication: DEPRESSION
     Dosage: 50 MG, 1X/DAY
     Route: 048
     Dates: start: 20090602, end: 2013
  2. PRISTIQ [Suspect]
     Dosage: 50 MG, 1X/DAY
     Route: 048
     Dates: start: 2013
  3. NEURONTIN [Suspect]
     Dosage: UNK

REACTIONS (6)
  - Drug dependence [Unknown]
  - Emotional disorder [Unknown]
  - Anger [Unknown]
  - White blood cell count decreased [Unknown]
  - Nasopharyngitis [Unknown]
  - Head discomfort [Unknown]
